FAERS Safety Report 7284207 (Version 5)
Quarter: 2013Q1

REPORT INFORMATION
  Report Type: Spontaneous
  Country: US (occurrence: US)
  Receive Date: 20100218
  Receipt Date: 20130305
  Transmission Date: 20140127
  Serious: Yes (Death, Other)
  Sender: FDA-Public Use
  Company Number: US-BAXTER-2010BH002822

PATIENT
  Sex: Female

DRUGS (1)
  1. DIANEAL PD4 [Suspect]
     Indication: PERITONEAL DIALYSIS
     Route: 033
     Dates: end: 20100202

REACTIONS (7)
  - Cerebrovascular accident [Fatal]
  - Haemorrhage intracranial [Fatal]
  - Hypertensive emergency [Unknown]
  - Device malfunction [Unknown]
  - Procedural complication [Unknown]
  - Pain [Unknown]
  - Feeling abnormal [Unknown]
